FAERS Safety Report 12060030 (Version 1)
Quarter: 2016Q1

REPORT INFORMATION
  Report Type: Spontaneous
  Country: GR (occurrence: GR)
  Receive Date: 20160210
  Receipt Date: 20160210
  Transmission Date: 20160526
  Serious: Yes (Other)
  Sender: FDA-Public Use
  Company Number: PHHY2016GR015761

PATIENT
  Age: 64 Year
  Sex: Male

DRUGS (1)
  1. DIGOXIN. [Suspect]
     Active Substance: DIGOXIN
     Indication: PRODUCT USED FOR UNKNOWN INDICATION
     Route: 065

REACTIONS (6)
  - Electrocardiogram ST segment [Unknown]
  - Electrocardiogram ST segment depression [Unknown]
  - Electrocardiogram T wave peaked [Unknown]
  - Electrocardiogram PR prolongation [Unknown]
  - Electrocardiogram QT shortened [Unknown]
  - Electrocardiogram U-wave abnormality [Unknown]
